FAERS Safety Report 5505266-2 (Version None)
Quarter: 2007Q4

REPORT INFORMATION
  Report Type: 
  Country: None (occurrence: None)
  Receive Date: 20071102
  Receipt Date: 20071019
  Transmission Date: 20080405
  Serious: Yes (Hospitalization)
  Sender: FDA-Public Use
  Company Number: IT-RANBAXY-2007RR-10879

PATIENT

DRUGS (2)
  1. NIMESULIDE RANBAXY 100MG GRANULATO PER SOSPENSIONE ORALE [Suspect]
  2. PARACETAMOLO RANBAXY 120MG/5ML SOLUZIONE ORALE [Suspect]

REACTIONS (1)
  - JAUNDICE CHOLESTATIC [None]
